FAERS Safety Report 8800308 (Version 2)
Quarter: 2015Q2

REPORT INFORMATION
  Report Type: Report from Study
  Country: US (occurrence: US)
  Receive Date: 20120921
  Receipt Date: 20150622
  Transmission Date: 20150821
  Serious: Yes (Death)
  Sender: FDA-Public Use
  Company Number: US-ROCHE-1125930

PATIENT
  Sex: Female

DRUGS (15)
  1. AVASTIN [Suspect]
     Active Substance: BEVACIZUMAB
     Dosage: RECEIVED ON 21/JAN/2005, 07/FEB/2005, 25/MAR/2005
     Route: 042
  2. ARANESP [Concomitant]
     Active Substance: DARBEPOETIN ALFA
     Route: 058
  3. ZANTAC [Concomitant]
     Active Substance: RANITIDINE HYDROCHLORIDE
     Route: 042
  4. DIPHENHYDRAMINE HCL [Concomitant]
     Active Substance: DIPHENHYDRAMINE HYDROCHLORIDE
     Route: 065
  5. FASLODEX [Concomitant]
     Active Substance: FULVESTRANT
     Route: 030
  6. ZOMETA [Concomitant]
     Active Substance: ZOLEDRONIC ACID
     Route: 042
  7. DEXAMETHASONE SODIUM PHOSPHATE. [Concomitant]
     Active Substance: DEXAMETHASONE SODIUM PHOSPHATE
     Route: 042
  8. AVASTIN [Suspect]
     Active Substance: BEVACIZUMAB
     Indication: BREAST CANCER FEMALE
     Dosage: RECEIVED ON 16/DEC/2004 AND 30/DEC/2004
     Route: 042
  9. HERCEPTIN [Suspect]
     Active Substance: TRASTUZUMAB
     Indication: BREAST CANCER FEMALE
     Dosage: RECEIVED ON 16/DEC/2004
     Route: 042
  10. LUPRON [Concomitant]
     Active Substance: LEUPROLIDE ACETATE
     Route: 042
  11. PACLITAXEL. [Concomitant]
     Active Substance: PACLITAXEL
     Route: 042
  12. MORPHINE SULFATE. [Concomitant]
     Active Substance: MORPHINE SULFATE
     Route: 048
  13. HERCEPTIN [Suspect]
     Active Substance: TRASTUZUMAB
     Dosage: RECEIVED ON 30/DEC/2004, 21/JAN2005, 07/FEB/2005, 25/MAR/2005
     Route: 042
  14. KYTRIL [Concomitant]
     Active Substance: GRANISETRON HYDROCHLORIDE
     Route: 042
  15. CARBOPLATIN. [Concomitant]
     Active Substance: CARBOPLATIN
     Route: 042

REACTIONS (7)
  - Death [Fatal]
  - Back pain [Unknown]
  - Mood altered [Unknown]
  - Nausea [Unknown]
  - Fatigue [Unknown]
  - Pyrexia [Unknown]
  - Decreased appetite [Unknown]
